FAERS Safety Report 23261943 (Version 2)
Quarter: 2024Q1

REPORT INFORMATION
  Report Type: Spontaneous
  Country: DE (occurrence: DE)
  Receive Date: 20231205
  Receipt Date: 20240126
  Transmission Date: 20240409
  Serious: Yes (Death, Other)
  Sender: FDA-Public Use
  Company Number: DE-SANDOZ-SDZ2023DE055035

PATIENT
  Sex: Male

DRUGS (4)
  1. NICOTINE [Suspect]
     Active Substance: NICOTINE
     Indication: Product used for unknown indication
     Dosage: UNK
     Route: 065
  2. VALSARTAN [Suspect]
     Active Substance: VALSARTAN
     Indication: Hypertension
     Dosage: 160 MG
     Route: 065
  3. VALSARTAN [Suspect]
     Active Substance: VALSARTAN
     Dosage: 320 MG
     Route: 065
     Dates: start: 201503, end: 201807
  4. VALSARTAN [Suspect]
     Active Substance: VALSARTAN
     Dosage: 160 MG/ 12, 5
     Route: 065
     Dates: start: 20150302, end: 20180702

REACTIONS (2)
  - Bronchial carcinoma [Fatal]
  - Suspected product contamination [Unknown]
